FAERS Safety Report 7191032-1 (Version None)
Quarter: 2010Q4

REPORT INFORMATION
  Report Type: 
  Country: None (occurrence: None)
  Receive Date: 20101223
  Receipt Date: 20100810
  Transmission Date: 20110411
  Serious: No
  Sender: FDA-Public Use
  Company Number: US-AMGEN-KDL430629

PATIENT

DRUGS (2)
  1. ENBREL [Suspect]
     Indication: PSORIATIC ARTHROPATHY
     Dosage: 50 MG, QWK
     Route: 058
     Dates: start: 20100615
  2. ENBREL [Suspect]
     Indication: PSORIASIS

REACTIONS (11)
  - ERYTHEMA [None]
  - HEADACHE [None]
  - IMPAIRED HEALING [None]
  - INJECTION SITE ERYTHEMA [None]
  - INJECTION SITE PRURITUS [None]
  - INJECTION SITE SWELLING [None]
  - LOCAL SWELLING [None]
  - PAPULE [None]
  - PRURITUS [None]
  - PSORIATIC ARTHROPATHY [None]
  - SECRETION DISCHARGE [None]
